FAERS Safety Report 7241090-0 (Version None)
Quarter: 2011Q1

REPORT INFORMATION
  Report Type: 
  Country: None (occurrence: None)
  Receive Date: 20110124
  Receipt Date: 20110114
  Transmission Date: 20110831
  Serious: Yes (Other)
  Sender: FDA-Public Use
  Company Number: JP-GENENTECH-311505

PATIENT
  Age: 74 Year
  Sex: Male

DRUGS (9)
  1. CEFTRIAXONE SODIUM [Concomitant]
     Indication: PRODUCT USED FOR UNKNOWN INDICATION
     Dosage: 1 G, QD
     Dates: start: 20100710, end: 20100721
  2. RADICUT [Suspect]
     Indication: EMBOLIC STROKE
     Dosage: 30 MG, BID
     Dates: start: 20100705, end: 20100718
  3. TENORMIN [Concomitant]
     Indication: PRODUCT USED FOR UNKNOWN INDICATION
     Dosage: 25 MG, QD
     Route: 048
     Dates: start: 20100723
  4. ACTIVASE [Suspect]
     Indication: EMBOLIC STROKE
     Dosage: 24 MIU, QD
     Route: 042
     Dates: start: 20100705, end: 20100705
  5. HALFDIGOXIN KY [Concomitant]
     Indication: PRODUCT USED FOR UNKNOWN INDICATION
     Dosage: 0.125 MG, QD
     Route: 048
     Dates: start: 20100723
  6. WARFARIN POTASSIUM [Concomitant]
     Indication: PRODUCT USED FOR UNKNOWN INDICATION
     Dosage: 2.75 MG, QD
     Route: 048
     Dates: start: 20100724
  7. AMLODIPINE [Concomitant]
     Indication: PRODUCT USED FOR UNKNOWN INDICATION
     Dosage: 10 MG, QD
     Route: 048
     Dates: start: 20100723
  8. FAMOTIDINE [Concomitant]
     Indication: PRODUCT USED FOR UNKNOWN INDICATION
     Dosage: 20 MG, QD
     Dates: start: 20100705, end: 20100723
  9. GLYCEOL [Concomitant]
     Indication: PRODUCT USED FOR UNKNOWN INDICATION
     Dosage: 600 ML, QD
     Dates: start: 20100706, end: 20100718

REACTIONS (2)
  - HAEMORRHAGIC CEREBRAL INFARCTION [None]
  - HEPATIC FUNCTION ABNORMAL [None]
